FAERS Safety Report 20429659 (Version 1)
Quarter: 2022Q1

REPORT INFORMATION
  Report Type: Spontaneous
  Country: US (occurrence: US)
  Receive Date: 20220204
  Receipt Date: 20220204
  Transmission Date: 20220423
  Serious: No
  Sender: FDA-Public Use
  Company Number: US-ALKERMES INC.-ALK-2022-000524

PATIENT
  Sex: Male

DRUGS (1)
  1. VIVITROL [Suspect]
     Active Substance: NALTREXONE
     Indication: Drug dependence
     Dosage: 380 MILLIGRAM, QMO
     Route: 030
     Dates: start: 202001, end: 202001

REACTIONS (5)
  - Erectile dysfunction [Unknown]
  - Oliguria [Unknown]
  - Insomnia [Unknown]
  - Night sweats [Unknown]
  - Decreased appetite [Unknown]
